FAERS Safety Report 18587647 (Version 2)
Quarter: 2021Q1

REPORT INFORMATION
  Report Type: Spontaneous
  Country: PL (occurrence: PL)
  Receive Date: 20201207
  Receipt Date: 20210301
  Transmission Date: 20210419
  Serious: Yes (Hospitalization, Other)
  Sender: FDA-Public Use
  Company Number: NVSC2020PL317990

PATIENT
  Age: 66 Year
  Sex: Male

DRUGS (1)
  1. ENTRESTO [Suspect]
     Active Substance: SACUBITRIL\VALSARTAN
     Indication: PRODUCT USED FOR UNKNOWN INDICATION
     Dosage: UNK
     Route: 065
     Dates: start: 201901

REACTIONS (9)
  - Glomerular filtration rate decreased [Unknown]
  - General physical health deterioration [Unknown]
  - Hypotension [Unknown]
  - Yellow skin [Unknown]
  - Cardiac failure chronic [Unknown]
  - Ventricular tachycardia [Unknown]
  - Oedema [Unknown]
  - Malignant neoplasm of renal pelvis [Unknown]
  - Renal impairment [Unknown]

NARRATIVE: CASE EVENT DATE: 20200127
